FAERS Safety Report 12466136 (Version 1)
Quarter: 2016Q2

REPORT INFORMATION
  Report Type: Spontaneous
  Country: US (occurrence: US)
  Receive Date: 20160614
  Receipt Date: 20160614
  Transmission Date: 20160815
  Serious: Yes (Hospitalization, Other)
  Sender: FDA-Public Use
  Company Number: US-009507513-0709USA03335

PATIENT
  Age: 25 Year
  Sex: Female

DRUGS (16)
  1. DECADRON [Suspect]
     Active Substance: DEXAMETHASONE
     Indication: PLATELET COUNT DECREASED
     Route: 042
  2. METOPROLOL. [Concomitant]
     Active Substance: METOPROLOL
     Route: 042
  3. VALACYCLOVIR HYDROCHLORIDE. [Concomitant]
     Active Substance: VALACYCLOVIR HYDROCHLORIDE
  4. BETAMETHASONE. [Concomitant]
     Active Substance: BETAMETHASONE
  5. FLAGYL [Concomitant]
     Active Substance: METRONIDAZOLE\METRONIDAZOLE HYDROCHLORIDE
  6. VANCOMYCIN [Concomitant]
     Active Substance: VANCOMYCIN
  7. NAFCILLIN SODIUM. [Concomitant]
     Active Substance: NAFCILLIN SODIUM
     Route: 042
  8. METICORTEN [Concomitant]
     Active Substance: PREDNISONE
     Dosage: 60 MG, QD
     Route: 048
  9. TOPROL XL [Concomitant]
     Active Substance: METOPROLOL SUCCINATE
  10. WARFARIN [Concomitant]
     Active Substance: WARFARIN
  11. ZOSYN [Concomitant]
     Active Substance: PIPERACILLIN SODIUM\TAZOBACTAM SODIUM
     Route: 042
  12. LEPIRUDIN [Concomitant]
     Active Substance: LEPIRUDIN
  13. LABETALOL HYDROCHLORIDE. [Concomitant]
     Active Substance: LABETALOL HYDROCHLORIDE
  14. CEFEPIME [Concomitant]
     Active Substance: CEFEPIME HYDROCHLORIDE
     Route: 042
  15. FOSPHENYTOIN SODIUM. [Concomitant]
     Active Substance: FOSPHENYTOIN SODIUM
     Route: 042
  16. PRINIVIL [Concomitant]
     Active Substance: LISINOPRIL

REACTIONS (3)
  - Exposure during pregnancy [Recovered/Resolved]
  - Premature delivery [Recovered/Resolved]
  - Drug ineffective [Recovering/Resolving]
